FAERS Safety Report 17995612 (Version 1)
Quarter: 2020Q3

REPORT INFORMATION
  Report Type: Spontaneous
  Country: GB (occurrence: GB)
  Receive Date: 20200708
  Receipt Date: 20200708
  Transmission Date: 20201103
  Serious: Yes (Other)
  Sender: FDA-Public Use
  Company Number: GB-TEVA-2020-GB-1797589

PATIENT
  Age: 52 Year
  Sex: Female
  Weight: 73.02 kg

DRUGS (3)
  1. CLOTRIMAZOLE. [Suspect]
     Active Substance: CLOTRIMAZOLE
     Indication: CANDIDA INFECTION
     Dosage: 500 MG
     Route: 067
     Dates: start: 20200615, end: 20200616
  2. ZUMENON [Concomitant]
     Active Substance: ESTRADIOL
  3. DAY NURSE (ACETAMINOPHEN\PHOLCODINE\PSEUDOEPHEDRINE HYDROCHLORIDE) [Suspect]
     Active Substance: ACETAMINOPHEN\PHOLCODINE\PSEUDOEPHEDRINE HYDROCHLORIDE
     Indication: INFLUENZA
     Dosage: 500 MG
     Route: 048
     Dates: start: 20200416, end: 20200417

REACTIONS (3)
  - Restlessness [Recovered/Resolved]
  - Abdominal pain upper [Recovered/Resolved]
  - Dyskinesia [Recovered/Resolved]

NARRATIVE: CASE EVENT DATE: 20200416
